FAERS Safety Report 18538544 (Version 1)
Quarter: 2020Q4

REPORT INFORMATION
  Report Type: Spontaneous
  Country: BG (occurrence: BG)
  Receive Date: 20201124
  Receipt Date: 20201124
  Transmission Date: 20210114
  Serious: Yes (Hospitalization, Other)
  Sender: FDA-Public Use
  Company Number: NVSC2020BG310503

PATIENT
  Age: 74 Year
  Sex: Male

DRUGS (6)
  1. HYDROCHLOROTHIAZIDE,VALSARTAN [Suspect]
     Active Substance: HYDROCHLOROTHIAZIDE\VALSARTAN
     Indication: HYPERTENSIVE HEART DISEASE
     Dosage: 1 DF, QD (VALSARTAN 160 MG / HYDROCHLOROTHIAZIDE 12.5 MG)
     Route: 065
     Dates: start: 2018, end: 202009
  2. VALSARTAN. [Concomitant]
     Active Substance: VALSARTAN
     Indication: HYPERTENSION
     Dosage: 160 MG, QD (SHORT PERIODS)
     Route: 065
     Dates: start: 2011, end: 2018
  3. VALSARTAN. [Concomitant]
     Active Substance: VALSARTAN
     Indication: HYPERTENSIVE HEART DISEASE
     Dosage: UNK
     Route: 065
     Dates: start: 2018
  4. BISOPROLOL [Concomitant]
     Active Substance: BISOPROLOL
     Indication: PRODUCT USED FOR UNKNOWN INDICATION
     Dosage: 5 MG-ONE HALF A DAY
     Route: 065
     Dates: start: 2018
  5. AMLODIPINE [Concomitant]
     Active Substance: AMLODIPINE BESYLATE
     Indication: PRODUCT USED FOR UNKNOWN INDICATION
     Dosage: 5 MG
     Route: 065
     Dates: start: 2018
  6. HYDROCHLOROTHIAZIDE,VALSARTAN [Suspect]
     Active Substance: HYDROCHLOROTHIAZIDE\VALSARTAN
     Indication: HYPERTENSION
     Dosage: 1 DF, QD (VALSARTAN 160 MG / HYDROCHLOROTHIAZIDE 25 MG)
     Route: 062
     Dates: start: 2011, end: 2018

REACTIONS (3)
  - Malignant melanoma [Unknown]
  - Adenocarcinoma of colon [Unknown]
  - Kaposi^s sarcoma [Recovered/Resolved]

NARRATIVE: CASE EVENT DATE: 2018
